FAERS Safety Report 12191570 (Version 1)
Quarter: 2016Q1

REPORT INFORMATION
  Report Type: Report from Study
  Country: NL (occurrence: NL)
  Receive Date: 20160318
  Receipt Date: 20160318
  Transmission Date: 20160526
  Serious: Yes (Hospitalization)
  Sender: FDA-Public Use
  Company Number: NL-ABBVIE-16P-114-1559326-00

PATIENT
  Sex: Female
  Weight: 122 kg

DRUGS (1)
  1. LUCRIN DEPOT [Suspect]
     Active Substance: LEUPROLIDE ACETATE
     Indication: ENDOMETRIOSIS
     Route: 030
     Dates: start: 20150611, end: 20151124

REACTIONS (2)
  - Hysterosalpingo-oophorectomy [Recovering/Resolving]
  - Intestinal resection [Recovering/Resolving]
